FAERS Safety Report 9241782 (Version 1)
Quarter: 2013Q2

REPORT INFORMATION
  Report Type: Spontaneous
  Country: US (occurrence: US)
  Receive Date: 20130419
  Receipt Date: 20130419
  Transmission Date: 20140414
  Serious: Yes (Other)
  Sender: FDA-Public Use
  Company Number: US-SANOFI-AVENTIS-2013SA039437

PATIENT
  Age: 82 Year
  Sex: Female

DRUGS (5)
  1. LANTUS SOLOSTAR [Suspect]
     Indication: TYPE 2 DIABETES MELLITUS
     Dosage: STARTED SINCE 3 YEARS. DOSE:10 UNIT(S)
     Route: 058
  2. SOLOSTAR [Suspect]
     Indication: TYPE 2 DIABETES MELLITUS
  3. HUMALOG [Concomitant]
  4. METFORMIN [Concomitant]
  5. DRUG USED IN DIABETES [Concomitant]

REACTIONS (5)
  - Urinary tract infection [Unknown]
  - Heart rate irregular [Unknown]
  - Drug resistance [Unknown]
  - Blood glucose abnormal [Unknown]
  - Blood glucose increased [Unknown]
